FAERS Safety Report 14171387 (Version 1)
Quarter: 2017Q4

REPORT INFORMATION
  Report Type: Spontaneous
  Country: GB (occurrence: GB)
  Receive Date: 20171108
  Receipt Date: 20171108
  Transmission Date: 20180321
  Serious: Yes (Other)
  Sender: FDA-Public Use
  Company Number: GB-PFIZER INC-2017476931

PATIENT
  Age: 3 Day
  Sex: Male
  Weight: 4.5 kg

DRUGS (4)
  1. BENZYLPENICILLINE [Concomitant]
     Active Substance: PENICILLIN G
     Dosage: UNK
  2. GENTAMICIN SULFATE. [Suspect]
     Active Substance: GENTAMICIN SULFATE
     Indication: SEPSIS NEONATAL
     Dosage: UNK
     Dates: start: 20171018, end: 20171023
  3. CHLORAL HYDRATE [Interacting]
     Active Substance: CHLORAL HYDRATE
     Indication: SEDATIVE THERAPY
     Dosage: 225 ML, UNK (50ML/KG)
     Route: 048
     Dates: start: 20171020
  4. NYSTATIN. [Concomitant]
     Active Substance: NYSTATIN
     Dosage: UNK

REACTIONS (2)
  - Anaphylactoid reaction [Recovered/Resolved]
  - Drug interaction [Unknown]

NARRATIVE: CASE EVENT DATE: 20171020
